FAERS Safety Report 4505906-0 (Version None)
Quarter: 2004Q4

REPORT INFORMATION
  Report Type: 
  Country: None (occurrence: None)
  Receive Date: 20041025
  Receipt Date: 20040316
  Transmission Date: 20050328
  Serious: Yes (Other)
  Sender: FDA-Public Use
  Company Number: US-JNJFOC-20040104674

PATIENT
  Age: 58 Year
  Sex: Male
  Weight: 84.369 kg

DRUGS (6)
  1. REMICADE [Suspect]
     Indication: RHEUMATOID ARTHRITIS
     Dosage: SEE IMAGE; INTRAVENOUS
     Route: 042
     Dates: start: 20011113
  2. REMICADE [Suspect]
     Indication: RHEUMATOID ARTHRITIS
     Dosage: SEE IMAGE; INTRAVENOUS
     Route: 042
     Dates: start: 20040123
  3. ATENOLOL [Concomitant]
  4. CALCIUM + D (CALCIUM) [Concomitant]
  5. CILOSTAZOL [Concomitant]
  6. LISINOPRIL [Concomitant]

REACTIONS (6)
  - DIZZINESS [None]
  - EYE SWELLING [None]
  - HYPOTENSION [None]
  - INFUSION RELATED REACTION [None]
  - THROAT TIGHTNESS [None]
  - VISION BLURRED [None]
